FAERS Safety Report 12241213 (Version 2)
Quarter: 2020Q4

REPORT INFORMATION
  Report Type: Other
  Country: DK (occurrence: DK)
  Receive Date: 20160406
  Receipt Date: 20201217
  Transmission Date: 20210113
  Serious: Yes (Other)
  Sender: FDA-Public Use
  Company Number: DK-ROCHE-1733844

PATIENT
  Sex: Female

DRUGS (2)
  1. CAPECITABINE. [Suspect]
     Active Substance: CAPECITABINE
     Indication: BREAST CANCER
     Dosage: FOR DAY 1-14
     Route: 065
  2. VINORELBINE [Suspect]
     Active Substance: VINORELBINE TARTRATE
     Indication: BREAST CANCER
     Dosage: VINORELBINE 60 MG/M2 DAY 1 + DAY 8 IN THE FIRST CYCLE FOLLOWED BY 80 MG/M2 DAY 1 + DAY 8 IN THE FOLL
     Route: 048

REACTIONS (38)
  - Febrile neutropenia [Unknown]
  - Nausea [Unknown]
  - Abdominal pain [Unknown]
  - Back pain [Unknown]
  - Dehydration [Unknown]
  - Hypokalaemia [Unknown]
  - Leukopenia [Unknown]
  - Pulmonary oedema [Unknown]
  - Fracture [Unknown]
  - Embolism [Unknown]
  - Weight decreased [Unknown]
  - Transaminases increased [Unknown]
  - Vomiting [Unknown]
  - Pleural effusion [Unknown]
  - Neuropathy peripheral [Unknown]
  - Diarrhoea [Unknown]
  - Fatigue [Unknown]
  - Ascites [Unknown]
  - Cystitis [Unknown]
  - Pyrexia [Unknown]
  - Hypotension [Unknown]
  - Pain [Unknown]
  - Neutropenia [Unknown]
  - Thrombocytopenia [Unknown]
  - Arrhythmia [Unknown]
  - Haemorrhage [Unknown]
  - Mucosal inflammation [Unknown]
  - Cough [Unknown]
  - Dyspnoea [Unknown]
  - Thrombosis [Unknown]
  - Constipation [Unknown]
  - Visual impairment [Unknown]
  - Alopecia [Unknown]
  - Decreased appetite [Unknown]
  - Palmar-plantar erythrodysaesthesia syndrome [Unknown]
  - Infection [Unknown]
  - Multiple organ dysfunction syndrome [Unknown]
  - Dizziness [Unknown]
